FAERS Safety Report 7827630-9 (Version None)
Quarter: 2011Q4

REPORT INFORMATION
  Report Type: 
  Country: None (occurrence: None)
  Receive Date: 20111017
  Receipt Date: 20111004
  Transmission Date: 20120403
  Serious: Yes (Other)
  Sender: FDA-Public Use
  Company Number: 2011GW000530

PATIENT
  Age: 5 Year
  Sex: Female

DRUGS (1)
  1. ZYCLARA [Suspect]
     Indication: MOLLUSCUM CONTAGIOSUM
     Dosage: 3.75 PCT; ;TOP
     Route: 061

REACTIONS (1)
  - RENAL FAILURE [None]
